FAERS Safety Report 11863871 (Version 2)
Quarter: 2015Q4

REPORT INFORMATION
  Report Type: Spontaneous
  Country: CN (occurrence: CN)
  Receive Date: 20151223
  Receipt Date: 20151231
  Transmission Date: 20160305
  Serious: Yes (Other)
  Sender: FDA-Public Use
  Company Number: CN-PFIZER INC-2015450840

PATIENT
  Age: 29 Year
  Sex: Female

DRUGS (1)
  1. ZOLOFT [Suspect]
     Active Substance: SERTRALINE HYDROCHLORIDE
     Indication: DEPRESSION
     Dosage: UNK UNK, 1X/DAY
     Route: 048
     Dates: start: 20151212, end: 20151216

REACTIONS (6)
  - Diarrhoea [Recovering/Resolving]
  - Cardiac discomfort [Recovered/Resolved]
  - Discomfort [Recovering/Resolving]
  - Decreased appetite [Recovering/Resolving]
  - Vomiting [Recovering/Resolving]
  - Abdominal discomfort [Recovering/Resolving]

NARRATIVE: CASE EVENT DATE: 201512
